FAERS Safety Report 7345307-3 (Version None)
Quarter: 2011Q1

REPORT INFORMATION
  Report Type: 
  Country: None (occurrence: None)
  Receive Date: 20110310
  Receipt Date: 20110301
  Transmission Date: 20110831
  Serious: Yes (Hospitalization)
  Sender: FDA-Public Use
  Company Number: US-ASTRAZENECA-2008UW00028

PATIENT
  Age: 66 Year
  Sex: Female
  Weight: 70.3 kg

DRUGS (8)
  1. LYRICA [Concomitant]
  2. AMBIEN [Concomitant]
  3. MULTI-VITAMINS [Concomitant]
  4. ASPIRIN [Concomitant]
  5. CRESTOR [Suspect]
     Route: 048
  6. CRESTOR [Suspect]
     Route: 048
  7. TRICOR [Concomitant]
  8. OSTEO JOINT [Concomitant]

REACTIONS (3)
  - MYALGIA [None]
  - HYPOAESTHESIA [None]
  - KNEE OPERATION [None]
